FAERS Safety Report 19827649 (Version 3)
Quarter: 2022Q2

REPORT INFORMATION
  Report Type: Report from Study
  Country: CA (occurrence: CA)
  Receive Date: 20210914
  Receipt Date: 20220412
  Transmission Date: 20220721
  Serious: Yes (Life-Threatening, Other)
  Sender: FDA-Public Use
  Company Number: CA-JNJFOC-20210923755

PATIENT
  Age: 39 Year
  Sex: Female
  Weight: 89.3 kg

DRUGS (2)
  1. REMICADE [Suspect]
     Active Substance: INFLIXIMAB
     Indication: Crohn^s disease
     Route: 042
     Dates: start: 20080131
  2. REMICADE [Suspect]
     Active Substance: INFLIXIMAB
     Dosage: ON 07-APR-2022, RECEIVED RELOADING DOSE AND THEN CONTINUED ON EVERY 4 WEEKS
     Route: 042

REACTIONS (2)
  - Breast cancer [Recovering/Resolving]
  - Crohn^s disease [Unknown]

NARRATIVE: CASE EVENT DATE: 20210801
